FAERS Safety Report 16163953 (Version 2)
Quarter: 2019Q2

REPORT INFORMATION
  Report Type: Spontaneous
  Country: US (occurrence: US)
  Receive Date: 20190405
  Receipt Date: 20190430
  Transmission Date: 20190711
  Serious: Yes (Congenital Anomaly, Other)
  Sender: FDA-Public Use
  Company Number: PHEH2019US014816

PATIENT

DRUGS (1)
  1. ZOFRAN ODT [Suspect]
     Active Substance: ONDANSETRON HYDROCHLORIDE
     Indication: FOETAL EXPOSURE DURING PREGNANCY
     Route: 064

REACTIONS (13)
  - Anhedonia [Unknown]
  - Heterotaxia [Unknown]
  - Atrioventricular septal defect [Unknown]
  - Pulmonary valve incompetence [Unknown]
  - Foetal exposure during pregnancy [Unknown]
  - Injury [Not Recovered/Not Resolved]
  - Pain [Unknown]
  - Ventricular septal defect [Unknown]
  - Pulmonary valve stenosis [Unknown]
  - Congenital anomaly [Unknown]
  - Deformity [Unknown]
  - Double outlet right ventricle [Unknown]
  - Emotional distress [Unknown]
